FAERS Safety Report 11561498 (Version 2)
Quarter: 2015Q4

REPORT INFORMATION
  Report Type: Spontaneous
  Country: JP (occurrence: JP)
  Receive Date: 20150928
  Receipt Date: 20151014
  Transmission Date: 20160304
  Serious: Yes (Death, Hospitalization)
  Sender: FDA-Public Use
  Company Number: JP-ARBOR PHARMACEUTICALS, LLC-JP-2015ARB000089

PATIENT

DRUGS (5)
  1. TEMOZOLOMIDE. [Suspect]
     Active Substance: TEMOZOLOMIDE
     Indication: GLIOBLASTOMA
     Dosage: 280 MG, 1 IN 1 D
     Route: 048
     Dates: start: 20141020, end: 20150213
  2. NASEA [Concomitant]
     Active Substance: RAMOSETRON HYDROCHLORIDE
     Indication: ANTIEMETIC SUPPORTIVE CARE
     Dosage: 0.1 MG, 1 IN 1 D
     Route: 048
     Dates: start: 20150214, end: 20150216
  3. TEMOZOLOMIDE. [Suspect]
     Active Substance: TEMOZOLOMIDE
     Dosage: 240 MG, 1 IN 1 D
     Route: 048
     Dates: start: 20150214, end: 20150218
  4. GLIADEL [Suspect]
     Active Substance: CARMUSTINE
     Indication: GLIOBLASTOMA
     Dosage: 7.7 MG, 5 TOTAL
     Dates: start: 20141007, end: 20150507
  5. PERAPRIN [Concomitant]
     Active Substance: METOCLOPRAMIDE
     Indication: ANTIEMETIC SUPPORTIVE CARE
     Dosage: 5 MG, UNK
     Route: 048
     Dates: end: 20150331

REACTIONS (2)
  - Drug eruption [Fatal]
  - General physical health deterioration [None]

NARRATIVE: CASE EVENT DATE: 20150226
